FAERS Safety Report 8382436-X (Version None)
Quarter: 2012Q2

REPORT INFORMATION
  Report Type: 
  Country: None (occurrence: None)
  Receive Date: 20120524
  Receipt Date: 20120519
  Transmission Date: 20120825
  Serious: Yes (Other)
  Sender: FDA-Public Use
  Company Number: PHHY2012SE043050

PATIENT
  Sex: Female

DRUGS (1)
  1. TEGRETOL [Suspect]
     Dosage: 4 DF, QD

REACTIONS (10)
  - LUNG DISORDER [None]
  - EAR HAEMORRHAGE [None]
  - PAIN [None]
  - CHEST PAIN [None]
  - MOOD ALTERED [None]
  - SENSATION OF PRESSURE [None]
  - RENAL DISORDER [None]
  - EPISTAXIS [None]
  - TINNITUS [None]
  - ALOPECIA [None]
